FAERS Safety Report 6576802-2 (Version None)
Quarter: 2010Q1

REPORT INFORMATION
  Report Type: 
  Country: None (occurrence: None)
  Receive Date: 20100210
  Receipt Date: 20100206
  Transmission Date: 20100710
  Serious: Yes (Other)
  Sender: FDA-Public Use
  Company Number: CN-ROCHE-683869

PATIENT
  Age: 77 Year
  Sex: Male
  Weight: 170 kg

DRUGS (1)
  1. XELODA [Suspect]
     Route: 048
     Dates: start: 20090801

REACTIONS (2)
  - DRUG INEFFECTIVE [None]
  - MALIGNANT NEOPLASM PROGRESSION [None]
